FAERS Safety Report 14015923 (Version 10)
Quarter: 2018Q3

REPORT INFORMATION
  Report Type: Report from Study
  Country: US (occurrence: US)
  Receive Date: 20170927
  Receipt Date: 20180705
  Transmission Date: 20181010
  Serious: Yes (Hospitalization, Other)
  Sender: FDA-Public Use
  Company Number: US-JNJFOC-20170127803

PATIENT
  Age: 81 Year
  Sex: Female

DRUGS (11)
  1. IMBRUVICA [Suspect]
     Active Substance: IBRUTINIB
     Indication: CHRONIC LYMPHOCYTIC LEUKAEMIA
     Route: 048
     Dates: start: 20180403
  2. IMBRUVICA [Suspect]
     Active Substance: IBRUTINIB
     Indication: CHRONIC LYMPHOCYTIC LEUKAEMIA
     Route: 048
     Dates: start: 20170206
  3. IMBRUVICA [Suspect]
     Active Substance: IBRUTINIB
     Indication: CHRONIC LYMPHOCYTIC LEUKAEMIA
     Route: 048
     Dates: start: 2017
  4. BENADRYL [Concomitant]
     Active Substance: DIPHENHYDRAMINE HYDROCHLORIDE
     Indication: PRURITUS
     Route: 048
  5. IMBRUVICA [Suspect]
     Active Substance: IBRUTINIB
     Indication: CHRONIC LYMPHOCYTIC LEUKAEMIA
     Route: 048
     Dates: start: 20161229
  6. ZOLOFT [Concomitant]
     Active Substance: SERTRALINE HYDROCHLORIDE
     Route: 065
  7. LEVOTHYROXINE. [Concomitant]
     Active Substance: LEVOTHYROXINE
  8. MULTIVITAMINS [Concomitant]
     Active Substance: VITAMINS
     Dosage: UNK
  9. IMBRUVICA [Suspect]
     Active Substance: IBRUTINIB
     Indication: CHRONIC LYMPHOCYTIC LEUKAEMIA
     Route: 048
     Dates: start: 20170111, end: 2017
  10. IMBRUVICA [Suspect]
     Active Substance: IBRUTINIB
     Indication: CHRONIC LYMPHOCYTIC LEUKAEMIA
     Route: 048
     Dates: start: 20170102
  11. VITAMIN D [Concomitant]
     Active Substance: CHOLECALCIFEROL

REACTIONS (35)
  - Hip fracture [Recovering/Resolving]
  - Thyroid hormones decreased [Recovering/Resolving]
  - Crying [Recovering/Resolving]
  - Pruritus [Not Recovered/Not Resolved]
  - Oropharyngeal pain [Not Recovered/Not Resolved]
  - Chills [Unknown]
  - Viral infection [Unknown]
  - Fall [Unknown]
  - Renal impairment [Unknown]
  - Nephrolithiasis [Unknown]
  - Weight increased [Not Recovered/Not Resolved]
  - Head injury [Unknown]
  - Adverse event [Unknown]
  - Dyspepsia [Unknown]
  - Animal scratch [Unknown]
  - Blood count abnormal [Recovering/Resolving]
  - Asthenia [Unknown]
  - Wrist fracture [Recovering/Resolving]
  - Photosensitivity reaction [Unknown]
  - Influenza [Unknown]
  - Rash macular [Recovered/Resolved]
  - Headache [Unknown]
  - Muscle strain [Recovered/Resolved]
  - Impaired healing [Unknown]
  - Off label use [Not Recovered/Not Resolved]
  - Urinary tract infection bacterial [Unknown]
  - Blood iron decreased [Not Recovered/Not Resolved]
  - Dizziness [Unknown]
  - Malaise [Unknown]
  - Inappropriate schedule of drug administration [Not Recovered/Not Resolved]
  - Rhinorrhoea [Not Recovered/Not Resolved]
  - Drug intolerance [Unknown]
  - Swelling [Unknown]
  - White blood cell count decreased [Unknown]
  - Haematuria [Recovered/Resolved]

NARRATIVE: CASE EVENT DATE: 2017
